FAERS Safety Report 9015507 (Version 1)
Quarter: 2013Q1

REPORT INFORMATION
  Report Type: Spontaneous
  Country: FR (occurrence: FR)
  Receive Date: 20130116
  Receipt Date: 20130116
  Transmission Date: 20140127
  Serious: Yes (Hospitalization)
  Sender: FDA-Public Use
  Company Number: FR-SANOFI-AVENTIS-2013SA002538

PATIENT
  Age: 84 Year
  Sex: Male

DRUGS (15)
  1. KARDEGIC [Suspect]
     Indication: PRODUCT USED FOR UNKNOWN INDICATION
     Route: 048
     Dates: end: 20121107
  2. KARDEGIC [Suspect]
     Indication: PRODUCT USED FOR UNKNOWN INDICATION
     Route: 048
     Dates: start: 20121112, end: 20121117
  3. LOVENOX [Suspect]
     Indication: PRODUCT USED FOR UNKNOWN INDICATION
     Route: 065
     Dates: start: 20121107
  4. LOVENOX [Suspect]
     Indication: PRODUCT USED FOR UNKNOWN INDICATION
     Dosage: DOSE:2 UNIT(S)
     Route: 058
     Dates: start: 20121112, end: 20121117
  5. ALDACTAZINE [Concomitant]
  6. COLCHICINE [Concomitant]
  7. CRESTOR /UNK/ [Concomitant]
     Dosage: STRENGTH: 5 MG
     Route: 048
  8. DAFALGAN [Concomitant]
     Dosage: STRENGTH: 500 MG
     Route: 048
  9. INEXIUM [Concomitant]
     Dosage: STRENGTH: 20 MG
     Route: 048
  10. LAROXYL [Concomitant]
     Dosage: STRENGTH: 40 MG
     Route: 048
  11. LOPERAMIDE [Concomitant]
  12. PERMIXON [Concomitant]
  13. PREVISCAN [Concomitant]
     Dates: start: 20121107
  14. FLUINDIONE [Concomitant]
     Dates: end: 20121107
  15. CIFLOX [Concomitant]
     Indication: PROSTATITIS
     Dates: start: 20121112

REACTIONS (10)
  - Renal failure acute [Unknown]
  - Oliguria [Unknown]
  - Shock haemorrhagic [Recovered/Resolved]
  - Arrhythmia [Recovering/Resolving]
  - Hypotension [Recovered/Resolved]
  - Pallor [Recovered/Resolved]
  - Peripheral coldness [Recovered/Resolved]
  - Haemorrhagic anaemia [Recovered/Resolved]
  - Retroperitoneal haematoma [Recovering/Resolving]
  - Renal haematoma [Recovering/Resolving]
